FAERS Safety Report 8848214 (Version 2)
Quarter: 2019Q3

REPORT INFORMATION
  Report Type: Spontaneous
  Country: ES (occurrence: ES)
  Receive Date: 20121018
  Receipt Date: 20190716
  Transmission Date: 20191005
  Serious: Yes (Hospitalization, Other)
  Sender: FDA-Public Use
  Company Number: ES-BAYER-2012-106552

PATIENT
  Age: 35 Year
  Sex: Male

DRUGS (3)
  1. CYPROTERONE ACETATE 50 [IN MALE] [Suspect]
     Active Substance: CYPROTERONE ACETATE
     Indication: FEMINISATION ACQUIRED
     Dosage: 50 MG, BID
  2. ESTRADIOL (PATCH) [Suspect]
     Active Substance: ESTRADIOL
     Indication: TRANSGENDER HORMONAL THERAPY
     Dosage: DAILY DOSE 100 ?G
     Route: 062
  3. ESTRADIOL (PATCH) [Suspect]
     Active Substance: ESTRADIOL
     Indication: FEMINISATION ACQUIRED

REACTIONS (5)
  - Meningioma [Recovered/Resolved]
  - Visual impairment [Recovering/Resolving]
  - Headache [Recovering/Resolving]
  - Optic atrophy [Unknown]
  - Medication error [Unknown]
